FAERS Safety Report 4939940-3 (Version None)
Quarter: 2006Q1

REPORT INFORMATION
  Report Type: 
  Country: None (occurrence: None)
  Receive Date: 20060310
  Receipt Date: 20040623
  Transmission Date: 20060701
  Serious: Yes (Hospitalization)
  Sender: FDA-Public Use
  Company Number: AT-SANOFI-SYNTHELABO-D01200402

PATIENT
  Age: 70 Year
  Sex: Male
  Weight: 79 kg

DRUGS (7)
  1. FONDAPARINUX [Suspect]
     Indication: ACUTE CORONARY SYNDROME
     Dosage: 2.5MG PER DAY
     Route: 058
     Dates: start: 20040606, end: 20040608
  2. ASPIRIN [Concomitant]
  3. CONCOR [Concomitant]
  4. PANTOPRAZOLE SODIUM [Concomitant]
  5. PLAVIX [Concomitant]
  6. SIMVASTATIN [Concomitant]
  7. TRITACE [Concomitant]

REACTIONS (2)
  - CATHETER RELATED COMPLICATION [None]
  - EMBOLISM [None]
